FAERS Safety Report 8758487 (Version 1)
Quarter: 2012Q4

REPORT INFORMATION
  Report Type: 
  Country: CA (occurrence: CA)
  Receive Date: 20120829
  Receipt Date: 20120829
  Transmission Date: 20130627
  Serious: Yes (Hospitalization, Other)
  Sender: FDA-Public Use
  Company Number: CA-JNJFOC-20120810079

PATIENT
  Age: 21 Year
  Sex: Male

DRUGS (2)
  1. INVEGA SUSTENNA [Suspect]
     Indication: SCHIZOPHRENIA
     Route: 030
  2. INVEGA SUSTENNA [Suspect]
     Indication: SCHIZOPHRENIA
     Route: 030

REACTIONS (3)
  - Hepatic enzyme increased [Unknown]
  - Hospitalisation [Unknown]
  - Drug effect incomplete [Unknown]
